FAERS Safety Report 7914617-0 (Version None)
Quarter: 2011Q4

REPORT INFORMATION
  Report Type: 
  Country: None (occurrence: None)
  Receive Date: 20111115
  Receipt Date: 20111107
  Transmission Date: 20120403
  Serious: Yes (Death, Hospitalization)
  Sender: FDA-Public Use
  Company Number: PHEH2011US08065

PATIENT
  Sex: Female

DRUGS (1)
  1. EXJADE [Suspect]
     Indication: HAEMOCHROMATOSIS
     Dosage: 1000 MG, DAILY
     Route: 048
     Dates: start: 20111014

REACTIONS (3)
  - DEHYDRATION [None]
  - BLOOD POTASSIUM DECREASED [None]
  - DEATH [None]
